FAERS Safety Report 5768359 (Version 2)
Quarter: 2018Q3

REPORT INFORMATION
  Report Type: Spontaneous
  Country: DE (occurrence: DE)
  Receive Date: 20050321
  Receipt Date: 20180822
  Transmission Date: 20181010
  Serious: Yes (Life-Threatening, Hospitalization, Disabling, Other)
  Sender: FDA-Public Use
  Company Number: GXKR2005DE00735

PATIENT
  Age: 61 Year
  Sex: Female
  Weight: 64 kg

DRUGS (3)
  1. METFORMIN [Suspect]
     Active Substance: METFORMIN HYDROCHLORIDE
     Indication: TYPE 2 DIABETES MELLITUS
     Dosage: 850 MG, TID
     Route: 065
  2. GLIMEPIRIDE. [Concomitant]
     Active Substance: GLIMEPIRIDE
     Dosage: 3 MG, QD
     Route: 065
  3. GLIMEPIRIDE. [Concomitant]
     Active Substance: GLIMEPIRIDE
     Indication: TYPE 2 DIABETES MELLITUS
     Dosage: 3 MG, QD
     Route: 065

REACTIONS (10)
  - Bradyarrhythmia [Recovered/Resolved with Sequelae]
  - Systemic inflammatory response syndrome [Recovered/Resolved with Sequelae]
  - Nausea [Recovered/Resolved]
  - Speech disorder [Recovered/Resolved]
  - Lactic acidosis [Recovered/Resolved]
  - Vision blurred [Recovered/Resolved]
  - Cardiac arrest [Recovered/Resolved with Sequelae]
  - Renal failure [Unknown]
  - Hypothermia [Recovered/Resolved]
  - Abdominal pain [Recovered/Resolved]
